FAERS Safety Report 17823881 (Version 1)
Quarter: 2020Q2

REPORT INFORMATION
  Report Type: Spontaneous
  Country: CN (occurrence: CN)
  Receive Date: 20200526
  Receipt Date: 20200526
  Transmission Date: 20200714
  Serious: Yes (Other)
  Sender: FDA-Public Use
  Company Number: CN-BAXTER-2020BAX010606

PATIENT
  Age: 39 Year
  Sex: Male

DRUGS (16)
  1. PIRARUBICIN HYDROCHLORIDE [Suspect]
     Active Substance: PIRARUBICIN HYDROCHLORIDE
     Indication: DIFFUSE LARGE B-CELL LYMPHOMA
     Dosage: DAY 1; 5% GLUCOSE 100ML + PIRARUBICIN HYDROCHLORIDE
     Route: 041
     Dates: start: 20200506, end: 20200506
  2. VINCRISTINE SULFATE. [Suspect]
     Active Substance: VINCRISTINE SULFATE
     Indication: DIFFUSE LARGE B-CELL LYMPHOMA
     Dosage: 0. 9% SODIUM CHLORIDE 250ML + VINCRISTINE SULFATE
     Route: 041
     Dates: start: 20200506, end: 20200506
  3. SODIUM CHLORIDE. [Suspect]
     Active Substance: SODIUM CHLORIDE
     Dosage: DOSE RE-INTRODUCED; 0. 9% SODIUM CHLORIDE +RITUXIMAB
     Route: 041
     Dates: start: 202005
  4. 0.9% SODIUM CHLORIDE INJECTION [Suspect]
     Active Substance: SODIUM CHLORIDE
     Indication: MEDICATION DILUTION
     Dosage: 0. 9% SODIUM CHLORIDE + VINCRISTINE SULFATE 2MG
     Route: 041
     Dates: start: 20200506, end: 20200506
  5. RITUXIMAB. [Suspect]
     Active Substance: RITUXIMAB
     Indication: DIFFUSE LARGE B-CELL LYMPHOMA
     Dosage: DAY 1; 0. 9% SODIUM CHLORIDE 700 ML+RITUXIMAB
     Route: 041
     Dates: start: 20200506, end: 20200506
  6. VINCRISTINE SULFATE. [Suspect]
     Active Substance: VINCRISTINE SULFATE
     Dosage: DOSE RE-INTRODUCED; 0. 9% SODIUM CHLORIDE + VINCRISTINE SULFATE
     Route: 041
     Dates: start: 202005
  7. SODIUM CHLORIDE. [Suspect]
     Active Substance: SODIUM CHLORIDE
     Dosage: DAY 1; 0. 9% SODIUM CHLORIDE +RITUXIMAB 700 MG
     Route: 041
     Dates: start: 20200506, end: 20200506
  8. SODIUM CHLORIDE. [Suspect]
     Active Substance: SODIUM CHLORIDE
     Dosage: DOSE RE-INTRODUCED; 0. 9% SODIUM CHLORIDE + CYCLOPHOSPHAMIDE
     Route: 041
     Dates: start: 202005
  9. ENDOXAN [Suspect]
     Active Substance: CYCLOPHOSPHAMIDE
     Indication: DIFFUSE LARGE B-CELL LYMPHOMA
     Dosage: DAY 1; 0. 9% SODIUM CHLORIDE 100ML + CYCLOPHOSPHAMIDE
     Route: 041
     Dates: start: 20200506, end: 20200506
  10. ENDOXAN [Suspect]
     Active Substance: CYCLOPHOSPHAMIDE
     Dosage: DOSE RE-INTRODUCED; 0. 9% SODIUM CHLORIDE + CYCLOPHOSPHAMIDE
     Route: 041
     Dates: start: 202005
  11. SODIUM CHLORIDE. [Suspect]
     Active Substance: SODIUM CHLORIDE
     Indication: MEDICATION DILUTION
     Dosage: DAY 1; 0. 9% SODIUM CHLORIDE + CYCLOPHOSPHAMIDE 1.4 G
     Route: 041
     Dates: start: 20200506, end: 20200506
  12. GLUCOSE [Suspect]
     Active Substance: DEXTROSE
     Dosage: DOSE RE-INTRODUCED; 5% GLUCOSE + PIRARUBICIN HYDROCHLORIDE
     Route: 041
     Dates: start: 202005
  13. 0.9% SODIUM CHLORIDE INJECTION [Suspect]
     Active Substance: SODIUM CHLORIDE
     Dosage: DOSE RE-INTRODUCED; 0. 9% SODIUM CHLORIDE + VINCRISTINE SULFATE
     Route: 041
     Dates: start: 202005
  14. PIRARUBICIN HYDROCHLORIDE [Suspect]
     Active Substance: PIRARUBICIN HYDROCHLORIDE
     Dosage: DOSE RE-INTRODUCED; 5% GLUCOSE + PIRARUBICIN HYDROCHLORIDE
     Route: 041
     Dates: start: 202005
  15. GLUCOSE [Suspect]
     Active Substance: DEXTROSE
     Indication: MEDICATION DILUTION
     Dosage: DAY 1; 5% GLUCOSE + PIRARUBICIN HYDROCHLORIDE 70 MG
     Route: 041
     Dates: start: 20200506, end: 20200506
  16. RITUXIMAB. [Suspect]
     Active Substance: RITUXIMAB
     Dosage: DOSE RE-INTRODUCED; 0. 9% SODIUM CHLORIDE INJECTION +RITUXIMAB
     Route: 041
     Dates: start: 202005

REACTIONS (1)
  - Bone marrow failure [Recovering/Resolving]

NARRATIVE: CASE EVENT DATE: 20200512
